FAERS Safety Report 17689084 (Version 1)
Quarter: 2020Q2

REPORT INFORMATION
  Report Type: Spontaneous
  Country: US (occurrence: US)
  Receive Date: 20200421
  Receipt Date: 20200421
  Transmission Date: 20200714
  Serious: Yes (Death, Hospitalization, Other)
  Sender: FDA-Public Use
  Company Number: US-CADILA HEALTHCARE LIMITED-US-ZYDUS-047510

PATIENT

DRUGS (1)
  1. BOSENTAN 125 MG TABLETS [Suspect]
     Active Substance: BOSENTAN
     Indication: PRODUCT USED FOR UNKNOWN INDICATION
     Dosage: 125 MILLIGRAM
     Route: 065

REACTIONS (8)
  - Hypertension [Recovered/Resolved]
  - Dialysis [Recovered/Resolved]
  - Cerebrovascular accident [Recovered/Resolved]
  - Hypotension [Recovered/Resolved]
  - Death [Fatal]
  - Hospitalisation [Recovered/Resolved]
  - Adverse drug reaction [Recovered/Resolved]
  - Product dose omission [Recovered/Resolved]

NARRATIVE: CASE EVENT DATE: 2020
